FAERS Safety Report 9365398 (Version 1)
Quarter: 2013Q2

REPORT INFORMATION
  Report Type: Spontaneous
  Country: US (occurrence: None)
  Receive Date: 20130624
  Receipt Date: 20130624
  Transmission Date: 20140414
  Serious: Yes (Death)
  Sender: FDA-Public Use
  Company Number: None

PATIENT
  Age: 63 None
  Sex: Female

DRUGS (13)
  1. PROMACTA 25 MG GLAXO SMITH KLINE [Suspect]
     Indication: IDIOPATHIC THROMBOCYTOPENIC PURPURA
     Dosage: 25 MG, Q MONDAY, THURS, BY MOUTH
     Route: 048
     Dates: start: 201305, end: 201306
  2. PREDNISONE [Concomitant]
  3. ATENOLOL [Concomitant]
  4. LOSARTAN [Concomitant]
  5. HCTZ [Concomitant]
  6. METFORMIN [Concomitant]
  7. FUROSEMIDE [Concomitant]
  8. KCL [Concomitant]
  9. ALPRAZOLAM [Concomitant]
  10. MORPHINE [Concomitant]
  11. DOCUSATE SODIUM [Concomitant]
  12. FERROUS SULFATE [Concomitant]
  13. MVI [Concomitant]

REACTIONS (7)
  - Platelet count increased [None]
  - Blood pressure decreased [None]
  - Chest pain [None]
  - Vomiting [None]
  - Electrocardiogram ST segment depression [None]
  - Hyperhidrosis [None]
  - Pallor [None]
